FAERS Safety Report 7170168-5 (Version None)
Quarter: 2010Q4

REPORT INFORMATION
  Report Type: 
  Country: None (occurrence: None)
  Receive Date: 20101123
  Receipt Date: 20100924
  Transmission Date: 20110411
  Serious: No
  Sender: FDA-Public Use
  Company Number: 019378

PATIENT
  Sex: Female
  Weight: 81.6 kg

DRUGS (14)
  1. CIMZIA [Suspect]
     Indication: CROHN'S DISEASE
     Dosage: (400 MG 1X/28 SUBCUTANEOUS)
     Route: 058
     Dates: start: 20090616
  2. VENLAFAXINE [Suspect]
     Indication: DEPRESSION
     Dosage: (75 MG ORAL)
     Route: 048
  3. TRAMADOL [Concomitant]
  4. COMPAZINE [Concomitant]
  5. TYLENOL (CAPLET) [Concomitant]
  6. LONOX [Concomitant]
  7. CYANOCOBALAMIN [Concomitant]
  8. CALTRATE /00108001/ [Concomitant]
  9. IRON [Concomitant]
  10. MULTI-VITAMINS [Concomitant]
  11. BUDESONIDE [Concomitant]
  12. CONTRACEPTIVE NOS [Concomitant]
  13. PRILOSEC [Concomitant]
  14. CALCIUM [Concomitant]

REACTIONS (2)
  - CROHN'S DISEASE [None]
  - HAEMATOCHEZIA [None]
